FAERS Safety Report 9664649 (Version 1)
Quarter: 2013Q4

REPORT INFORMATION
  Report Type: Spontaneous
  Country: US (occurrence: None)
  Receive Date: 20131031
  Receipt Date: 20131031
  Transmission Date: 20140711
  Serious: Yes (Hospitalization)
  Sender: FDA-Public Use
  Company Number: None

PATIENT
  Age: 66 Year
  Sex: Male
  Weight: 61.24 kg

DRUGS (1)
  1. VESICARE 5 MG [Suspect]
     Route: 048
     Dates: start: 20130416, end: 20130508

REACTIONS (1)
  - Intestinal obstruction [None]
